FAERS Safety Report 11317123 (Version 2)
Quarter: 2015Q3

REPORT INFORMATION
  Report Type: Spontaneous
  Country: US (occurrence: US)
  Receive Date: 20150728
  Receipt Date: 20150817
  Transmission Date: 20151125
  Serious: Yes (Other)
  Sender: FDA-Public Use
  Company Number: US-ENDO PHARMACEUTICALS INC.-2015-001990

PATIENT
  Age: 70 Year
  Sex: Male
  Weight: 90.8 kg

DRUGS (2)
  1. TESTOPEL [Suspect]
     Active Substance: TESTOSTERONE
     Indication: HYPOGONADISM
     Dosage: 10 PELLETS
     Route: 065
     Dates: start: 20150702
  2. TESTOPEL [Suspect]
     Active Substance: TESTOSTERONE
     Indication: BLOOD TESTOSTERONE DECREASED

REACTIONS (3)
  - Prescribed overdose [Not Recovered/Not Resolved]
  - Inflammation [Recovering/Resolving]
  - Implant site infection [Not Recovered/Not Resolved]

NARRATIVE: CASE EVENT DATE: 20150702
